FAERS Safety Report 9507355 (Version 1)
Quarter: 2013Q1

REPORT INFORMATION
  Report Type: Spontaneous
  Country: US (occurrence: None)
  Receive Date: 20130305
  Receipt Date: 20130305
  Transmission Date: 20140127
  Serious: Yes (Disabling, Other)
  Sender: FDA-Public Use
  Company Number: 163-21880-10050555

PATIENT
  Age: 63 Year
  Sex: Male

DRUGS (3)
  1. REVLIMID [Suspect]
     Indication: PLASMA CELL MYELOMA
     Dosage: X 14 D
     Route: 048
     Dates: start: 20100112, end: 20100503
  2. VELCADE (UNKNOWN) [Concomitant]
  3. DECADRON (DEXAMETHASONE) [Concomitant]

REACTIONS (4)
  - Disease progression [None]
  - Fatigue [None]
  - Musculoskeletal pain [None]
  - Therapeutic response decreased [None]
